FAERS Safety Report 21829989 (Version 1)
Quarter: 2023Q1

REPORT INFORMATION
  Report Type: Spontaneous
  Country: CA (occurrence: CA)
  Receive Date: 20230106
  Receipt Date: 20230106
  Transmission Date: 20230417
  Serious: Yes (Other)
  Sender: FDA-Public Use
  Company Number: CA-HALEON-CACH2022AMR010939

PATIENT

DRUGS (4)
  1. IBUPROFEN [Suspect]
     Active Substance: IBUPROFEN
     Indication: Product used for unknown indication
     Dosage: UNK
  2. MEPOLIZUMAB [Suspect]
     Active Substance: MEPOLIZUMAB
     Indication: Asthma
     Dosage: 100 MG
     Route: 058
  3. CITALOPRAM [Concomitant]
     Active Substance: CITALOPRAM HYDROBROMIDE
     Indication: Product used for unknown indication
     Dosage: UNK
  4. VENTOLIN [Concomitant]
     Active Substance: ALBUTEROL SULFATE
     Indication: Product used for unknown indication
     Dosage: UNK

REACTIONS (13)
  - Drug hypersensitivity [Unknown]
  - Asthenia [Unknown]
  - Bell^s palsy [Unknown]
  - Contusion [Unknown]
  - Facial paralysis [Unknown]
  - Fatigue [Unknown]
  - Illness [Unknown]
  - Inappropriate schedule of product administration [Unknown]
  - Infection [Unknown]
  - Pain [Unknown]
  - Pneumonia [Unknown]
  - Product dose omission issue [Unknown]
  - Viral infection [Unknown]
